FAERS Safety Report 10693050 (Version 1)
Quarter: 2014Q4

REPORT INFORMATION
  Report Type: Spontaneous
  Country: US (occurrence: None)
  Receive Date: 20141223
  Receipt Date: 20141223
  Transmission Date: 20150529
  Serious: No
  Sender: FDA-Public Use
  Company Number: 1000070763

PATIENT
  Age: 59 Year
  Sex: Female

DRUGS (9)
  1. LOSARTAN (LOSARTAN) [Concomitant]
     Active Substance: LOSARTAN
  2. OMEPRAZOLE (OMEPRAZOLE) [Concomitant]
     Active Substance: OMEPRAZOLE
  3. LINZESS [Suspect]
     Active Substance: LINACLOTIDE
     Indication: IRRITABLE BOWEL SYNDROME
     Route: 048
     Dates: start: 20140908
  4. ONDANSETRON. [Concomitant]
     Active Substance: ONDANSETRON
  5. BUPROPION (BUPROPION) [Concomitant]
     Active Substance: BUPROPION
  6. TRAMADOL (TRAMADOL) [Concomitant]
     Active Substance: TRAMADOL
  7. URSODIOL (URSODEOXYCHOLIC ACID) [Concomitant]
  8. HYDROCODONE  (HYDROCODONE) [Concomitant]
     Active Substance: HYDROCODONE
  9. PRAVASTATIN [Concomitant]
     Active Substance: PRAVASTATIN\PRAVASTATIN SODIUM

REACTIONS (3)
  - Off label use [None]
  - Joint swelling [None]
  - Peripheral swelling [None]

NARRATIVE: CASE EVENT DATE: 201409
